FAERS Safety Report 8477385-2 (Version None)
Quarter: 2012Q2

REPORT INFORMATION
  Report Type: 
  Country: None (occurrence: None)
  Receive Date: 20120629
  Receipt Date: 20120621
  Transmission Date: 20120825
  Serious: Yes (Other)
  Sender: FDA-Public Use
  Company Number: JP-SANOFI-AVENTIS-2012SA043569

PATIENT
  Age: 88 Year
  Sex: Male
  Weight: 57.9 kg

DRUGS (6)
  1. PLAVIX [Suspect]
     Indication: ANGINA PECTORIS
     Route: 048
     Dates: start: 20120121
  2. SIGMART [Suspect]
     Route: 065
  3. LANSOPRAZOLE [Suspect]
     Route: 065
  4. ASPIRIN [Suspect]
     Route: 065
  5. LOSARTAN POTASSIUM [Suspect]
     Route: 065
  6. SIMVASTATIN [Suspect]
     Route: 065

REACTIONS (1)
  - JAUNDICE CHOLESTATIC [None]
